FAERS Safety Report 5256920-1 (Version None)
Quarter: 2007Q1

REPORT INFORMATION
  Report Type: 
  Country: None (occurrence: None)
  Receive Date: 20070305
  Receipt Date: 20070305
  Transmission Date: 20070707
  Serious: No
  Sender: FDA-Public Use
  Company Number: None

PATIENT
  Age: 71 Year
  Sex: Male
  Weight: 89.8122 kg

DRUGS (1)
  1. ADENOSINE [Suspect]
     Dosage: 140 MCG/KG/MIN  IV
     Route: 042
     Dates: start: 20061111, end: 20061111

REACTIONS (2)
  - BRONCHOSPASM [None]
  - PROCEDURAL COMPLICATION [None]
